FAERS Safety Report 9254328 (Version 2)
Quarter: 2013Q2

REPORT INFORMATION
  Report Type: Spontaneous
  Country: US (occurrence: US)
  Receive Date: 20130425
  Receipt Date: 20130502
  Transmission Date: 20140414
  Serious: Yes (Disabling)
  Sender: FDA-Public Use
  Company Number: PHEH2013US009152

PATIENT
  Sex: Male

DRUGS (5)
  1. EXFORGE HCT [Suspect]
     Indication: BLOOD PRESSURE MANAGEMENT
     Dosage: 325 MG, UNK
  2. LIPITOR [Concomitant]
     Dosage: 10 MG, DAILY
  3. PLAVIX [Concomitant]
     Dosage: 75 MG, DAILY
  4. METOPROLOL [Concomitant]
     Dosage: 100 MG, A DAY
  5. CLONIDINE [Concomitant]
     Dosage: 0.2 MG, A DAY

REACTIONS (1)
  - Cerebrovascular accident [Unknown]
